FAERS Safety Report 13720209 (Version 1)
Quarter: 2017Q3

REPORT INFORMATION
  Report Type: Spontaneous
  Country: DE (occurrence: DE)
  Receive Date: 20170706
  Receipt Date: 20170706
  Transmission Date: 20171127
  Serious: Yes (Other)
  Sender: FDA-Public Use
  Company Number: DE-AUROBINDO-AUR-APL-2017-36360

PATIENT
  Age: 84 Year
  Sex: Male

DRUGS (5)
  1. ALFUZOSIN [Suspect]
     Active Substance: ALFUZOSIN
     Indication: URINARY RETENTION
     Route: 048
  2. CLOPIDOGREL [Concomitant]
     Active Substance: CLOPIDOGREL BISULFATE
     Indication: ANTICOAGULANT THERAPY
     Route: 048
  3. FORADIL [Concomitant]
     Active Substance: FORMOTEROL FUMARATE
     Indication: ASTHMA
     Route: 055
  4. SIMVASTATIN. [Suspect]
     Active Substance: SIMVASTATIN
     Indication: LIPID METABOLISM DISORDER
     Route: 048
  5. SANASTHMAX [Concomitant]
     Indication: ASTHMA
     Route: 055

REACTIONS (1)
  - Symmetrical drug-related intertriginous and flexural exanthema [Recovered/Resolved]

NARRATIVE: CASE EVENT DATE: 201605
